FAERS Safety Report 4445545-3 (Version None)
Quarter: 2004Q3

REPORT INFORMATION
  Report Type: 
  Country: None (occurrence: None)
  Receive Date: 20040902
  Receipt Date: 20040816
  Transmission Date: 20050211
  Serious: Yes (Hospitalization)
  Sender: FDA-Public Use
  Company Number: A01200403691

PATIENT
  Age: 52 Year
  Sex: Male

DRUGS (3)
  1. PLAVIX [Suspect]
     Indication: CORONARY ARTERIAL STENT INSERTION
     Dosage: TIME TO ONSET : 2 WEEKS 6 DAYS
     Route: 048
     Dates: start: 20040621, end: 20040710
  2. ACETYLSALICYLIC ACID SRT [Concomitant]
  3. ENALAPRIL MALEATE [Concomitant]

REACTIONS (3)
  - ARTERITIS [None]
  - RASH MACULO-PAPULAR [None]
  - VASCULITIS [None]
